FAERS Safety Report 23702549 (Version 2)
Quarter: 2024Q3

REPORT INFORMATION
  Report Type: Report from Study
  Country: JP (occurrence: JP)
  Receive Date: 20240403
  Receipt Date: 20240909
  Transmission Date: 20241017
  Serious: Yes (Other)
  Sender: SHIONOGI
  Company Number: JP-shionogi-202402495_FTR_P_1

PATIENT

DRUGS (183)
  1. FETROJA [Suspect]
     Active Substance: CEFIDEROCOL SULFATE TOSYLATE
     Indication: Brain abscess
     Dosage: 1.5 G, 1 PER 12 HOUR
     Route: 041
     Dates: start: 20240229, end: 20240229
  2. FETROJA [Suspect]
     Active Substance: CEFIDEROCOL SULFATE TOSYLATE
     Indication: Pancreatitis necrotising
     Dosage: 1.5 G, PRN8
     Route: 041
     Dates: start: 20240301, end: 20240401
  3. FETROJA [Suspect]
     Active Substance: CEFIDEROCOL SULFATE TOSYLATE
     Dosage: 1.5 G, QD
     Route: 041
     Dates: start: 20240402, end: 20240402
  4. FETROJA [Suspect]
     Active Substance: CEFIDEROCOL SULFATE TOSYLATE
     Dosage: 2 G, 1 PER 12 HOUR
     Route: 041
     Dates: start: 20240402, end: 20240402
  5. FETROJA [Suspect]
     Active Substance: CEFIDEROCOL SULFATE TOSYLATE
     Dosage: 2 G, PRN8
     Route: 041
     Dates: start: 20240403, end: 20240520
  6. CIPROFLOXACIN [Suspect]
     Active Substance: CIPROFLOXACIN
     Indication: Brain abscess
     Dosage: 400 MG, 1 PER 12 HOUR
     Route: 041
     Dates: start: 20240207, end: 20240329
  7. CIPROFLOXACIN [Suspect]
     Active Substance: CIPROFLOXACIN
     Indication: Pancreatitis necrotising
  8. METRONIDAZOLE [Concomitant]
     Active Substance: METRONIDAZOLE
     Indication: Brain abscess
     Dosage: 500 MG, 1 PER 12 HOUR
     Route: 041
     Dates: start: 20240207, end: 20240229
  9. METRONIDAZOLE [Concomitant]
     Active Substance: METRONIDAZOLE
     Indication: Pancreatitis necrotising
     Dosage: 500 MG, PRN8
     Route: 041
     Dates: start: 20240301, end: 20240501
  10. METRONIDAZOLE [Concomitant]
     Active Substance: METRONIDAZOLE
     Dosage: 500 MG, QD
     Route: 041
     Dates: start: 20240502, end: 20240502
  11. OMEPRAZOLE [Concomitant]
     Active Substance: OMEPRAZOLE
     Indication: Prophylaxis
     Dosage: 20 MG, QD
     Route: 041
     Dates: start: 20240307, end: 20240307
  12. OMEPRAZOLE [Concomitant]
     Active Substance: OMEPRAZOLE
     Dosage: 20 MG, 1 PER 12 HOUR
     Route: 041
     Dates: start: 20240308, end: 20240430
  13. ISOTONIC SODIUM CHLORIDE SOLUTION [Concomitant]
     Active Substance: SODIUM CHLORIDE
     Indication: Prophylaxis
     Dosage: 20 ML, QD
     Route: 041
     Dates: start: 20240301, end: 20240301
  14. ISOTONIC SODIUM CHLORIDE SOLUTION [Concomitant]
     Active Substance: SODIUM CHLORIDE
     Dosage: 20 ML, QD
     Route: 041
     Dates: start: 20240303, end: 20240303
  15. ISOTONIC SODIUM CHLORIDE SOLUTION [Concomitant]
     Active Substance: SODIUM CHLORIDE
     Dosage: 20 ML, QD
     Route: 041
     Dates: start: 20240307, end: 20240307
  16. ISOTONIC SODIUM CHLORIDE SOLUTION [Concomitant]
     Active Substance: SODIUM CHLORIDE
     Dosage: 20 ML, 1 PER 12 HOUR
     Route: 041
     Dates: start: 20240308, end: 20240430
  17. ISOTONIC SODIUM CHLORIDE SOLUTION [Concomitant]
     Active Substance: SODIUM CHLORIDE
     Dosage: 20 ML, QD
     Route: 041
     Dates: start: 20240316, end: 20240316
  18. CEFEPIME HYDROCHLORIDE [Concomitant]
     Active Substance: CEFEPIME HYDROCHLORIDE
     Indication: Pancreatitis necrotising
     Dosage: 1 G, 1 PER 12 HOUR
     Route: 041
     Dates: start: 20240207, end: 20240228
  19. CEFEPIME HYDROCHLORIDE [Concomitant]
     Active Substance: CEFEPIME HYDROCHLORIDE
     Indication: Brain abscess
     Dosage: 1 G, QD
     Route: 041
     Dates: start: 20240229, end: 20240229
  20. DEXTROSE [Concomitant]
     Active Substance: DEXTROSE\DEXTROSE MONOHYDRATE
     Indication: Brain abscess
     Dosage: 50 ML, PRN8
     Route: 041
     Dates: start: 20240229, end: 20240229
  21. DEXTROSE [Concomitant]
     Active Substance: DEXTROSE\DEXTROSE MONOHYDRATE
     Indication: Pancreatitis necrotising
     Dosage: 50 ML, 1 PER 12 HOUR
     Route: 041
     Dates: start: 20240301, end: 20240310
  22. DEXTROSE [Concomitant]
     Active Substance: DEXTROSE\DEXTROSE MONOHYDRATE
     Dosage: 50 ML, QD
     Route: 041
     Dates: start: 20240311, end: 20240311
  23. SODIUM CHLORIDE [Concomitant]
     Active Substance: SODIUM CHLORIDE
     Indication: Brain abscess
     Dosage: 500 ML, QD
     Route: 041
     Dates: start: 20240301, end: 20240301
  24. SODIUM CHLORIDE [Concomitant]
     Active Substance: SODIUM CHLORIDE
     Indication: Pancreatitis necrotising
  25. VANCOMYCIN HYDROCHLORIDE [Concomitant]
     Active Substance: VANCOMYCIN HYDROCHLORIDE
     Indication: Brain abscess
     Dosage: 0.75 G, 1 PER 12 HOUR
     Route: 041
     Dates: start: 20240229, end: 20240305
  26. VANCOMYCIN HYDROCHLORIDE [Concomitant]
     Active Substance: VANCOMYCIN HYDROCHLORIDE
     Indication: Pancreatitis necrotising
     Dosage: 0.75 G, QD
     Route: 041
     Dates: start: 20240306, end: 20240306
  27. VANCOMYCIN HYDROCHLORIDE [Concomitant]
     Active Substance: VANCOMYCIN HYDROCHLORIDE
     Dosage: 0.8 G, QD
     Route: 041
     Dates: start: 20240306, end: 20240306
  28. VANCOMYCIN HYDROCHLORIDE [Concomitant]
     Active Substance: VANCOMYCIN HYDROCHLORIDE
     Dosage: 0.8 G, 1 PER 12 HOUR
     Route: 041
     Dates: start: 20240307, end: 20240310
  29. VANCOMYCIN HYDROCHLORIDE [Concomitant]
     Active Substance: VANCOMYCIN HYDROCHLORIDE
     Dosage: 0.8 G, QD
     Route: 041
     Dates: start: 20240311, end: 20240311
  30. VANCOMYCIN HYDROCHLORIDE [Concomitant]
     Active Substance: VANCOMYCIN HYDROCHLORIDE
     Dosage: 0.9 G, QD
     Route: 041
     Dates: start: 20240311, end: 20240311
  31. VANCOMYCIN HYDROCHLORIDE [Concomitant]
     Active Substance: VANCOMYCIN HYDROCHLORIDE
     Dosage: 0.9 G, 1 PER 12 HOUR
     Route: 041
     Dates: start: 20240312, end: 20240312
  32. VANCOMYCIN HYDROCHLORIDE [Concomitant]
     Active Substance: VANCOMYCIN HYDROCHLORIDE
     Dosage: 0.9 G, QD
     Route: 041
     Dates: start: 20240313, end: 20240313
  33. VANCOMYCIN HYDROCHLORIDE [Concomitant]
     Active Substance: VANCOMYCIN HYDROCHLORIDE
     Dosage: 0.9 G, 1 PER 12 HOUR
     Route: 041
     Dates: start: 20240315, end: 20240318
  34. VANCOMYCIN HYDROCHLORIDE [Concomitant]
     Active Substance: VANCOMYCIN HYDROCHLORIDE
     Dosage: 0.9 G, QD
     Route: 041
     Dates: start: 20240319, end: 20240319
  35. VANCOMYCIN HYDROCHLORIDE [Concomitant]
     Active Substance: VANCOMYCIN HYDROCHLORIDE
     Dosage: 0.85 G, QD
     Route: 041
     Dates: start: 20240319, end: 20240319
  36. VANCOMYCIN HYDROCHLORIDE [Concomitant]
     Active Substance: VANCOMYCIN HYDROCHLORIDE
     Dosage: 0.85 G, 1 PER 12 HOUR
     Route: 041
     Dates: start: 20240320, end: 20240324
  37. VANCOMYCIN HYDROCHLORIDE [Concomitant]
     Active Substance: VANCOMYCIN HYDROCHLORIDE
     Dosage: 0.85 G, QD
     Route: 041
     Dates: start: 20240325, end: 20240325
  38. VANCOMYCIN HYDROCHLORIDE [Concomitant]
     Active Substance: VANCOMYCIN HYDROCHLORIDE
     Dosage: 0.8 G, QD
     Route: 041
     Dates: start: 20240325, end: 20240325
  39. VANCOMYCIN HYDROCHLORIDE [Concomitant]
     Active Substance: VANCOMYCIN HYDROCHLORIDE
     Dosage: 0.8 G, 1 PER 12 HOUR
     Route: 041
     Dates: start: 20240326, end: 20240326
  40. VANCOMYCIN HYDROCHLORIDE [Concomitant]
     Active Substance: VANCOMYCIN HYDROCHLORIDE
     Dosage: 0.8 G, QD
     Route: 041
     Dates: start: 20240327, end: 20240327
  41. VANCOMYCIN HYDROCHLORIDE [Concomitant]
     Active Substance: VANCOMYCIN HYDROCHLORIDE
     Dosage: 0.75 G, QD
     Route: 041
     Dates: start: 20240327, end: 20240327
  42. VANCOMYCIN HYDROCHLORIDE [Concomitant]
     Active Substance: VANCOMYCIN HYDROCHLORIDE
     Dosage: 0.75 G, 1 PER 12 HOUR
     Route: 041
     Dates: start: 20240328, end: 20240409
  43. VANCOMYCIN HYDROCHLORIDE [Concomitant]
     Active Substance: VANCOMYCIN HYDROCHLORIDE
     Dosage: 0.8 G, 1 PER 12 HOUR
     Route: 041
     Dates: start: 20240410, end: 20240421
  44. VANCOMYCIN HYDROCHLORIDE [Concomitant]
     Active Substance: VANCOMYCIN HYDROCHLORIDE
     Dosage: 0.8 G, QD
     Route: 041
     Dates: start: 20240422, end: 20240422
  45. VANCOMYCIN HYDROCHLORIDE [Concomitant]
     Active Substance: VANCOMYCIN HYDROCHLORIDE
     Dosage: 0.9 G, QD
     Route: 041
     Dates: start: 20240422, end: 20240422
  46. VANCOMYCIN HYDROCHLORIDE [Concomitant]
     Active Substance: VANCOMYCIN HYDROCHLORIDE
     Dosage: 0.9 G, 1 PER 12 HOUR
     Route: 041
     Dates: start: 20240423, end: 20240424
  47. VANCOMYCIN HYDROCHLORIDE [Concomitant]
     Active Substance: VANCOMYCIN HYDROCHLORIDE
     Dosage: 0.9 G, QD
     Route: 041
     Dates: start: 20240425, end: 20240425
  48. VANCOMYCIN HYDROCHLORIDE [Concomitant]
     Active Substance: VANCOMYCIN HYDROCHLORIDE
     Dosage: 0.9 G, 1 PER 12 HOUR
     Route: 041
     Dates: start: 20240426, end: 20240501
  49. VANCOMYCIN HYDROCHLORIDE [Concomitant]
     Active Substance: VANCOMYCIN HYDROCHLORIDE
     Dosage: 0.9 G, QD
     Route: 041
     Dates: start: 20240502, end: 20240502
  50. SODIUM CHLORIDE [Concomitant]
     Active Substance: SODIUM CHLORIDE
     Indication: Brain abscess
     Dosage: 100 ML, 1 PER 12 HOUR
     Route: 041
     Dates: start: 20240229, end: 20240229
  51. SODIUM CHLORIDE [Concomitant]
     Active Substance: SODIUM CHLORIDE
     Indication: Pancreatitis necrotising
     Dosage: 100 ML, PRN8
     Route: 041
     Dates: start: 20240301, end: 20240304
  52. SODIUM CHLORIDE [Concomitant]
     Active Substance: SODIUM CHLORIDE
     Dosage: 100 ML, PRN6
     Route: 041
     Dates: start: 20240305, end: 20240308
  53. SODIUM CHLORIDE [Concomitant]
     Active Substance: SODIUM CHLORIDE
     Dosage: 100 ML, 5 TIMES DAILY
     Route: 041
     Dates: start: 20240309, end: 20240310
  54. SODIUM CHLORIDE [Concomitant]
     Active Substance: SODIUM CHLORIDE
     Dosage: 100 ML, 6 TIMES DAILY
     Route: 041
     Dates: start: 20240311, end: 20240311
  55. SODIUM CHLORIDE [Concomitant]
     Active Substance: SODIUM CHLORIDE
     Dosage: 100 ML, 7 TIMES DAILY
     Route: 041
     Dates: start: 20240312, end: 20240312
  56. SODIUM CHLORIDE [Concomitant]
     Active Substance: SODIUM CHLORIDE
     Dosage: 100 ML, 6 TIMES DAILY
     Route: 041
     Dates: start: 20240313, end: 20240313
  57. SODIUM CHLORIDE [Concomitant]
     Active Substance: SODIUM CHLORIDE
     Dosage: 100 ML, 5 TIMES DAILY
     Route: 041
     Dates: start: 20240314, end: 20240314
  58. SODIUM CHLORIDE [Concomitant]
     Active Substance: SODIUM CHLORIDE
     Dosage: 100 ML, 7 TIMES DAILY
     Route: 041
     Dates: start: 20240315, end: 20240316
  59. SODIUM CHLORIDE [Concomitant]
     Active Substance: SODIUM CHLORIDE
     Dosage: 100 ML, 6 TIMES DAILY
     Route: 041
     Dates: start: 20240317, end: 20240318
  60. SODIUM CHLORIDE [Concomitant]
     Active Substance: SODIUM CHLORIDE
     Dosage: 100 ML, 7 TIMES DAILY
     Route: 041
     Dates: start: 20240319, end: 20240320
  61. SODIUM CHLORIDE [Concomitant]
     Active Substance: SODIUM CHLORIDE
     Dosage: 100 ML, 5 TIMES DAILY
     Route: 041
     Dates: start: 20240321, end: 20240321
  62. SODIUM PHOSPHATE [Concomitant]
     Active Substance: SODIUM PHOSPHATE
     Indication: Hypophosphataemia
     Dosage: 20 ML, QD
     Route: 041
     Dates: start: 20240304, end: 20240304
  63. SODIUM PHOSPHATE [Concomitant]
     Active Substance: SODIUM PHOSPHATE
     Dosage: 60 ML, QD
     Route: 041
     Dates: start: 20240305, end: 20240307
  64. SODIUM PHOSPHATE [Concomitant]
     Active Substance: SODIUM PHOSPHATE
     Dosage: 40 ML, QD
     Route: 041
     Dates: start: 20240308, end: 20240308
  65. SODIUM PHOSPHATE [Concomitant]
     Active Substance: SODIUM PHOSPHATE
     Dosage: 40 ML, 1 PER 12 HOUR
     Route: 041
     Dates: start: 20240309, end: 20240309
  66. SODIUM PHOSPHATE [Concomitant]
     Active Substance: SODIUM PHOSPHATE
     Dosage: 40 ML, QD
     Route: 041
     Dates: start: 20240310, end: 20240310
  67. SODIUM PHOSPHATE [Concomitant]
     Active Substance: SODIUM PHOSPHATE
     Dosage: 60 ML, QD
     Route: 041
     Dates: start: 20240310, end: 20240310
  68. SODIUM PHOSPHATE [Concomitant]
     Active Substance: SODIUM PHOSPHATE
     Dosage: 60 ML, 1 PER 12 HOUR
     Route: 041
     Dates: start: 20240311, end: 20240312
  69. SODIUM PHOSPHATE [Concomitant]
     Active Substance: SODIUM PHOSPHATE
     Dosage: 60 ML, QD
     Route: 041
     Dates: start: 20240313, end: 20240313
  70. SODIUM PHOSPHATE [Concomitant]
     Active Substance: SODIUM PHOSPHATE
     Dosage: 80 ML, QD
     Route: 041
     Dates: start: 20240313, end: 20240313
  71. SODIUM PHOSPHATE [Concomitant]
     Active Substance: SODIUM PHOSPHATE
     Dosage: 80 ML, 1 PER 12 HOUR
     Route: 041
     Dates: start: 20240314, end: 20240316
  72. SODIUM PHOSPHATE [Concomitant]
     Active Substance: SODIUM PHOSPHATE
     Dosage: 80 ML, QD
     Route: 041
     Dates: start: 20240317, end: 20240318
  73. SODIUM PHOSPHATE [Concomitant]
     Active Substance: SODIUM PHOSPHATE
     Dosage: 80 ML, 1 PER 12 HOUR
     Route: 041
     Dates: start: 20240319, end: 20240321
  74. SODIUM PHOSPHATE [Concomitant]
     Active Substance: SODIUM PHOSPHATE
     Dosage: 80 ML, QD
     Route: 041
     Dates: start: 20240322, end: 20240325
  75. SODIUM PHOSPHATE [Concomitant]
     Active Substance: SODIUM PHOSPHATE
     Dosage: 60 ML, 1 PER 12 HOUR
     Route: 041
     Dates: start: 20240326, end: 20240523
  76. DEXTROSE [Concomitant]
     Active Substance: DEXTROSE\DEXTROSE MONOHYDRATE
     Indication: Adverse event
     Dosage: 200 ML, QD
     Route: 041
     Dates: start: 20240229, end: 20240312
  77. DEXTROSE [Concomitant]
     Active Substance: DEXTROSE\DEXTROSE MONOHYDRATE
     Dosage: 200 ML, QD
     Route: 041
     Dates: start: 20240322, end: 20240401
  78. AMINO ACIDS, SOURCE UNSPECIFIED [Concomitant]
     Active Substance: AMINO ACIDS, SOURCE UNSPECIFIED
     Indication: Adverse event
     Dosage: 400 ML, QD
     Route: 041
     Dates: start: 20240229, end: 20240314
  79. AMINO ACIDS, SOURCE UNSPECIFIED [Concomitant]
     Active Substance: AMINO ACIDS, SOURCE UNSPECIFIED
     Dosage: 400 ML, QD
     Route: 041
     Dates: start: 20240316, end: 20240401
  80. AMINO ACIDS, SOURCE UNSPECIFIED [Concomitant]
     Active Substance: AMINO ACIDS, SOURCE UNSPECIFIED
     Dosage: 200 ML, QD
     Route: 041
     Dates: start: 20240402, end: 20240508
  81. AMINO ACIDS, SOURCE UNSPECIFIED [Concomitant]
     Active Substance: AMINO ACIDS, SOURCE UNSPECIFIED
     Dosage: 200 ML, QD
     Route: 041
     Dates: start: 20240510, end: 20240523
  82. ELEJECT [Concomitant]
     Indication: Adverse event
     Dosage: 1 {DF}, QD
     Route: 041
     Dates: start: 20240229, end: 20240314
  83. ELEJECT [Concomitant]
     Dosage: 1 {DF}, QD
     Route: 041
     Dates: start: 20240316, end: 20240508
  84. ELEJECT [Concomitant]
     Dosage: 1 {DF}, QD
     Route: 041
     Dates: start: 20240510, end: 20240523
  85. DAIMEDIN MULTI [Concomitant]
     Indication: Adverse event
     Dosage: 1 {DF}, QD
     Route: 041
     Dates: start: 20240229, end: 20240314
  86. DAIMEDIN MULTI [Concomitant]
     Dosage: 1 {DF}, QD
     Route: 041
     Dates: start: 20240316, end: 20240410
  87. POTASSIUM ASPARTATE [Concomitant]
     Active Substance: POTASSIUM ASPARTATE
     Indication: Hypokalaemia
     Dosage: 50 MEQ, QD
     Route: 041
     Dates: start: 20240229, end: 20240301
  88. POTASSIUM ASPARTATE [Concomitant]
     Active Substance: POTASSIUM ASPARTATE
     Dosage: 50 MEQ, QD
     Route: 041
     Dates: start: 20240304, end: 20240305
  89. POTASSIUM ASPARTATE [Concomitant]
     Active Substance: POTASSIUM ASPARTATE
     Dosage: 30 MEQ, QD
     Route: 041
     Dates: start: 20240306, end: 20240306
  90. POTASSIUM ASPARTATE [Concomitant]
     Active Substance: POTASSIUM ASPARTATE
     Dosage: 40 MEQ, QD
     Route: 041
     Dates: start: 20240307, end: 20240309
  91. POTASSIUM ASPARTATE [Concomitant]
     Active Substance: POTASSIUM ASPARTATE
     Dosage: 50 MEQ, QD
     Route: 041
     Dates: start: 20240311, end: 20240312
  92. PANTOL [PANTHENOL] [Concomitant]
     Indication: Adverse event
     Dosage: 4500 MG, QD
     Route: 041
     Dates: start: 20240229, end: 20240314
  93. PANTOL [PANTHENOL] [Concomitant]
     Dosage: 4500 MG, QD
     Route: 041
     Dates: start: 20240316, end: 20240404
  94. PANTOL [PANTHENOL] [Concomitant]
     Dosage: 3000 MG, QD
     Route: 041
     Dates: start: 20240405, end: 20240508
  95. PANTOL [PANTHENOL] [Concomitant]
     Dosage: 3000 MG, QD
     Route: 041
     Dates: start: 20240510, end: 20240523
  96. KCL [Concomitant]
     Active Substance: POTASSIUM CHLORIDE
     Indication: Hypokalaemia
     Dosage: 20 MEQ, QD
     Route: 041
     Dates: start: 20240302, end: 20240303
  97. KCL [Concomitant]
     Active Substance: POTASSIUM CHLORIDE
     Dosage: 60 MEQ, QD
     Route: 041
     Dates: start: 20240313, end: 20240314
  98. KCL [Concomitant]
     Active Substance: POTASSIUM CHLORIDE
     Dosage: 60 MEQ, QD
     Route: 041
     Dates: start: 20240316, end: 20240324
  99. KCL [Concomitant]
     Active Substance: POTASSIUM CHLORIDE
     Dosage: 40 MEQ, QD
     Route: 041
     Dates: start: 20240325, end: 20240328
  100. KCL [Concomitant]
     Active Substance: POTASSIUM CHLORIDE
     Dosage: 60 MEQ, QD
     Route: 041
     Dates: start: 20240329, end: 20240401
  101. KCL [Concomitant]
     Active Substance: POTASSIUM CHLORIDE
     Dosage: 20 MEQ, QD
     Route: 041
     Dates: start: 20240405, end: 20240405
  102. KCL [Concomitant]
     Active Substance: POTASSIUM CHLORIDE
     Dosage: 20 MEQ, 1 PER 12 HOUR
     Route: 041
     Dates: start: 20240406, end: 20240406
  103. KCL [Concomitant]
     Active Substance: POTASSIUM CHLORIDE
     Dosage: 40 MEQ, QD
     Route: 041
     Dates: start: 20240407, end: 20240506
  104. KCL [Concomitant]
     Active Substance: POTASSIUM CHLORIDE
     Dosage: 30 MEQ, QD
     Route: 041
     Dates: start: 20240507, end: 20240508
  105. KCL [Concomitant]
     Active Substance: POTASSIUM CHLORIDE
     Dosage: 30 MEQ, QD
     Route: 041
     Dates: start: 20240510, end: 20240523
  106. MAGNESIUM SULFATE [Concomitant]
     Active Substance: MAGNESIUM SULFATE\MAGNESIUM SULFATE HEPTAHYDRATE
     Indication: Adverse event
     Dosage: 1 MEQ, QD
     Route: 041
     Dates: start: 20240301, end: 20240301
  107. MAGNESIUM SULFATE [Concomitant]
     Active Substance: MAGNESIUM SULFATE\MAGNESIUM SULFATE HEPTAHYDRATE
     Dosage: 1 MEQ, QD
     Route: 041
     Dates: start: 20240304, end: 20240304
  108. MAGNESIUM SULFATE [Concomitant]
     Active Substance: MAGNESIUM SULFATE\MAGNESIUM SULFATE HEPTAHYDRATE
     Dosage: 1 MEQ, QD
     Route: 041
     Dates: start: 20240307, end: 20240307
  109. MAGNESIUM SULFATE [Concomitant]
     Active Substance: MAGNESIUM SULFATE\MAGNESIUM SULFATE HEPTAHYDRATE
     Dosage: 1 MEQ, QD
     Route: 041
     Dates: start: 20240310, end: 20240326
  110. MAGNESIUM SULFATE [Concomitant]
     Active Substance: MAGNESIUM SULFATE\MAGNESIUM SULFATE HEPTAHYDRATE
     Dosage: 1 MEQ, QD
     Route: 041
     Dates: start: 20240328, end: 20240328
  111. MAGNESIUM SULFATE [Concomitant]
     Active Substance: MAGNESIUM SULFATE\MAGNESIUM SULFATE HEPTAHYDRATE
     Dosage: 1 MEQ, QD
     Route: 041
     Dates: start: 20240330, end: 20240330
  112. MAGNESIUM SULFATE [Concomitant]
     Active Substance: MAGNESIUM SULFATE\MAGNESIUM SULFATE HEPTAHYDRATE
     Dosage: 1 MEQ, QD
     Route: 041
     Dates: start: 20240401, end: 20240523
  113. ACETAMINOPHEN [Concomitant]
     Active Substance: ACETAMINOPHEN
     Indication: Brain abscess
     Dosage: 1000 MG, QD
     Route: 041
     Dates: start: 20240307, end: 20240309
  114. ACETAMINOPHEN [Concomitant]
     Active Substance: ACETAMINOPHEN
     Indication: Pancreatitis necrotising
     Dosage: 1000 MG, QD
     Route: 041
     Dates: start: 20240524, end: 20240524
  115. HALOPERIDOL [Concomitant]
     Active Substance: HALOPERIDOL
     Dosage: 5 MG, QD
     Route: 041
     Dates: start: 20240301, end: 20240301
  116. HALOPERIDOL [Concomitant]
     Active Substance: HALOPERIDOL
     Dosage: 5 MG, QD
     Route: 041
     Dates: start: 20240303, end: 20240303
  117. HALOPERIDOL [Concomitant]
     Active Substance: HALOPERIDOL
     Dosage: 5 MG, QD
     Route: 041
     Dates: start: 20240316, end: 20240316
  118. CALCIUM CHLORIDE\POTASSIUM CHLORIDE\SODIUM ACETATE\SODIUM CHLORIDE [Concomitant]
     Active Substance: CALCIUM CHLORIDE\POTASSIUM CHLORIDE\SODIUM ACETATE\SODIUM CHLORIDE
     Indication: Brain abscess
     Dosage: 1 L, 1 PER 12 HOUR
     Route: 041
     Dates: start: 20240315, end: 20240315
  119. CALCIUM CHLORIDE\POTASSIUM CHLORIDE\SODIUM ACETATE\SODIUM CHLORIDE [Concomitant]
     Active Substance: CALCIUM CHLORIDE\POTASSIUM CHLORIDE\SODIUM ACETATE\SODIUM CHLORIDE
     Indication: Pancreatitis necrotising
  120. DEXTROSE [Concomitant]
     Active Substance: DEXTROSE\DEXTROSE MONOHYDRATE
     Indication: Adverse event
     Dosage: 100 ML, QD
     Route: 041
     Dates: start: 20240321, end: 20240321
  121. DEXTROSE [Concomitant]
     Active Substance: DEXTROSE\DEXTROSE MONOHYDRATE
     Indication: Pancreatitis necrotising
     Dosage: 100 ML, PRN8
     Route: 041
     Dates: start: 20240322, end: 20240325
  122. DEXTROSE [Concomitant]
     Active Substance: DEXTROSE\DEXTROSE MONOHYDRATE
     Indication: Brain abscess
     Dosage: 100 ML, PRN6
     Route: 041
     Dates: start: 20240326, end: 20240401
  123. DEXTROSE [Concomitant]
     Active Substance: DEXTROSE\DEXTROSE MONOHYDRATE
     Dosage: 100 ML, 7 TIMES DAILY
     Route: 041
     Dates: start: 20240402, end: 20240405
  124. DEXTROSE [Concomitant]
     Active Substance: DEXTROSE\DEXTROSE MONOHYDRATE
     Dosage: 100 ML, 8 TIMES DAILY
     Route: 041
     Dates: start: 20240406, end: 20240423
  125. DEXTROSE [Concomitant]
     Active Substance: DEXTROSE\DEXTROSE MONOHYDRATE
     Dosage: 100 ML, 5 TIMES DAILY
     Route: 041
     Dates: start: 20240424, end: 20240424
  126. DEXTROSE [Concomitant]
     Active Substance: DEXTROSE\DEXTROSE MONOHYDRATE
     Dosage: 100 ML, PRN6
     Route: 041
     Dates: start: 20240425, end: 20240425
  127. DEXTROSE [Concomitant]
     Active Substance: DEXTROSE\DEXTROSE MONOHYDRATE
     Dosage: 100 ML, 5 TIMES DAILY
     Route: 041
     Dates: start: 20240426, end: 20240501
  128. DEXTROSE [Concomitant]
     Active Substance: DEXTROSE\DEXTROSE MONOHYDRATE
     Dosage: 100 ML, PRN6
     Route: 041
     Dates: start: 20240502, end: 20240502
  129. DEXTROSE [Concomitant]
     Active Substance: DEXTROSE\DEXTROSE MONOHYDRATE
     Dosage: 100 ML, PRN8
     Route: 041
     Dates: start: 20240503, end: 20240515
  130. DEXTROSE [Concomitant]
     Active Substance: DEXTROSE\DEXTROSE MONOHYDRATE
     Dosage: 100 ML, 6 TIMES DAILY
     Route: 041
     Dates: start: 20240516, end: 20240520
  131. DEXTROSE [Concomitant]
     Active Substance: DEXTROSE\DEXTROSE MONOHYDRATE
     Dosage: 100 ML, PRN8
     Route: 041
     Dates: start: 20240521, end: 20240523
  132. SOYBEAN OIL [Concomitant]
     Active Substance: SOYBEAN OIL
     Indication: Pancreatitis necrotising
     Dosage: 100 ML, QD
     Route: 041
     Dates: start: 20240327, end: 20240327
  133. SOYBEAN OIL [Concomitant]
     Active Substance: SOYBEAN OIL
     Indication: Brain abscess
     Dosage: 100 ML, QD
     Route: 041
     Dates: start: 20240329, end: 20240329
  134. SOYBEAN OIL [Concomitant]
     Active Substance: SOYBEAN OIL
     Dosage: 100 ML, QD
     Route: 041
     Dates: start: 20240331, end: 20240331
  135. FILGRASTIM [Concomitant]
     Active Substance: FILGRASTIM
     Indication: Cytopenia
     Dosage: 1 {DF}, QD
     Route: 058
     Dates: start: 20240327, end: 20240327
  136. PRIMPERAN [Concomitant]
     Active Substance: METOCLOPRAMIDE HYDROCHLORIDE
     Indication: Adverse event
     Dosage: 10 MG, QD
     Route: 042
     Dates: start: 20240403, end: 20240404
  137. FULCALIQ [Concomitant]
     Active Substance: AMINO ACIDS\CARBOHYDRATES\ELECTROLYTES NOS\VITAMINS
     Indication: Brain abscess
     Dosage: 1103 ML, QD
     Route: 041
     Dates: start: 20240402, end: 20240508
  138. FULCALIQ [Concomitant]
     Active Substance: AMINO ACIDS\CARBOHYDRATES\ELECTROLYTES NOS\VITAMINS
     Indication: Pancreatitis necrotising
     Dosage: 1103 ML, QD
     Route: 041
     Dates: start: 20240510, end: 20240526
  139. FULCALIQ [Concomitant]
     Active Substance: AMINO ACIDS\CARBOHYDRATES\ELECTROLYTES NOS\VITAMINS
     Indication: Adverse event
  140. POTASSIUM CHLORIDE [Concomitant]
     Active Substance: POTASSIUM CHLORIDE
     Indication: Hypokalaemia
     Dosage: 3 G, PRN8
     Route: 048
     Dates: start: 20240305, end: 20240306
  141. POTASSIUM CHLORIDE [Concomitant]
     Active Substance: POTASSIUM CHLORIDE
     Dosage: 3 G, QD
     Route: 048
     Dates: start: 20240313, end: 20240313
  142. POTASSIUM CHLORIDE [Concomitant]
     Active Substance: POTASSIUM CHLORIDE
     Dosage: 3 G, 1 PER 12 HOUR
     Route: 048
     Dates: start: 20240314, end: 20240314
  143. POTASSIUM CHLORIDE [Concomitant]
     Active Substance: POTASSIUM CHLORIDE
     Dosage: 3 G, QD
     Route: 048
     Dates: start: 20240315, end: 20240315
  144. POTASSIUM CHLORIDE [Concomitant]
     Active Substance: POTASSIUM CHLORIDE
     Dosage: 3 G, QD
     Route: 048
     Dates: start: 20240317, end: 20240317
  145. POTASSIUM CHLORIDE [Concomitant]
     Active Substance: POTASSIUM CHLORIDE
     Dosage: 3 G, 1 PER 12 HOUR
     Route: 048
     Dates: start: 20240318, end: 20240325
  146. POTASSIUM CHLORIDE [Concomitant]
     Active Substance: POTASSIUM CHLORIDE
     Dosage: 3 G, QD
     Route: 048
     Dates: start: 20240326, end: 20240326
  147. NIFEDIPINE [Concomitant]
     Active Substance: NIFEDIPINE
     Indication: Hypertension
     Dosage: 10 MG, 1 PER 12 HOUR
     Route: 048
     Dates: start: 20240219, end: 20240316
  148. NIFEDIPINE [Concomitant]
     Active Substance: NIFEDIPINE
     Dosage: 10 MG, QD
     Route: 048
     Dates: start: 20240317, end: 20240317
  149. NIFEDIPINE [Concomitant]
     Active Substance: NIFEDIPINE
     Dosage: 20 MG, QD
     Route: 048
     Dates: start: 20240317, end: 20240317
  150. NIFEDIPINE [Concomitant]
     Active Substance: NIFEDIPINE
     Dosage: 20 MG, 1 PER 12 HOUR
     Route: 048
     Dates: start: 20240318, end: 20240424
  151. NIFEDIPINE [Concomitant]
     Active Substance: NIFEDIPINE
     Dosage: 20 MG, QD
     Route: 048
     Dates: start: 20240425, end: 20240425
  152. RIKKUNSHITO [ATRACTYLODES LANCEA RHIZOME;CITRUS X AURANTIUM PEEL;GLYCY [Concomitant]
     Indication: Constipation
     Dosage: 2.5 G, PRN8
     Route: 048
     Dates: start: 20240229, end: 20240306
  153. RIKKUNSHITO [ATRACTYLODES LANCEA RHIZOME;CITRUS X AURANTIUM PEEL;GLYCY [Concomitant]
     Dosage: 2.5 G, QD
     Route: 048
     Dates: start: 20240307, end: 20240307
  154. RIKKUNSHITO [ATRACTYLODES LANCEA RHIZOME;CITRUS X AURANTIUM PEEL;GLYCY [Concomitant]
     Dosage: 2.5 G, 1 PER 12 HOUR
     Route: 048
     Dates: start: 20240411, end: 20240411
  155. RIKKUNSHITO [ATRACTYLODES LANCEA RHIZOME;CITRUS X AURANTIUM PEEL;GLYCY [Concomitant]
     Dosage: 2.5 G, PRN8
     Route: 048
     Dates: start: 20240412, end: 20240423
  156. RIKKUNSHITO [ATRACTYLODES LANCEA RHIZOME;CITRUS X AURANTIUM PEEL;GLYCY [Concomitant]
     Dosage: 2.5 G, 1 PER 12 HOUR
     Route: 048
     Dates: start: 20240424, end: 20240424
  157. YOKUKANSANKACHIMPIHANGE [ANGELICA ACUTILOBA ROOT;ATRACTYLODES LANCEA R [Concomitant]
     Dosage: 2.5 G, PRN8
     Route: 048
     Dates: start: 20240229, end: 20240306
  158. YOKUKANSANKACHIMPIHANGE [ANGELICA ACUTILOBA ROOT;ATRACTYLODES LANCEA R [Concomitant]
     Dosage: 2.5 G, QD
     Route: 048
     Dates: start: 20240307, end: 20240307
  159. DAYVIGO [Concomitant]
     Active Substance: LEMBOREXANT
     Dosage: 5 MG, QD
     Route: 048
     Dates: start: 20240229, end: 20240606
  160. TRAZODONE HYDROCHLORIDE [Concomitant]
     Active Substance: TRAZODONE HYDROCHLORIDE
     Dosage: 150 MG, QD
     Route: 048
     Dates: start: 20240229, end: 20240422
  161. TRAZODONE HYDROCHLORIDE [Concomitant]
     Active Substance: TRAZODONE HYDROCHLORIDE
     Dosage: 100 MG, QD
     Route: 048
     Dates: start: 20240423, end: 20240506
  162. TRAZODONE HYDROCHLORIDE [Concomitant]
     Active Substance: TRAZODONE HYDROCHLORIDE
     Dosage: 75 MG, QD
     Route: 048
     Dates: start: 20240507, end: 20240606
  163. NAUZELIN [Concomitant]
     Active Substance: DOMPERIDONE
     Dosage: 10 MG, PRN8
     Route: 048
     Dates: start: 20240229, end: 20240306
  164. NAUZELIN [Concomitant]
     Active Substance: DOMPERIDONE
     Dosage: 10 MG, QD
     Route: 048
     Dates: start: 20240307, end: 20240307
  165. DIETARY SUPPLEMENT\PROBIOTICS [Concomitant]
     Active Substance: DIETARY SUPPLEMENT\PROBIOTICS NOS
     Dosage: 1 G, PRN8
     Route: 048
     Dates: start: 20240229, end: 20240306
  166. DIETARY SUPPLEMENT\PROBIOTICS [Concomitant]
     Active Substance: DIETARY SUPPLEMENT\PROBIOTICS NOS
     Dosage: 1 G, QD
     Route: 048
     Dates: start: 20240307, end: 20240307
  167. MOSAPRIDE CITRATE [Concomitant]
     Active Substance: MOSAPRIDE CITRATE
     Dosage: 5 MG, PRN8
     Route: 048
     Dates: start: 20240229, end: 20240514
  168. MOSAPRIDE CITRATE [Concomitant]
     Active Substance: MOSAPRIDE CITRATE
     Dosage: 5 MG, QD
     Route: 048
     Dates: start: 20240515, end: 20240515
  169. RAMELTEON [Concomitant]
     Active Substance: RAMELTEON
     Dosage: 8 MG, QD
     Route: 048
     Dates: start: 20240229, end: 20240606
  170. LANSOPRAZOLE [Concomitant]
     Active Substance: LANSOPRAZOLE
     Dosage: 15 MG, QD
     Route: 048
     Dates: start: 20240229, end: 20240306
  171. LANSOPRAZOLE [Concomitant]
     Active Substance: LANSOPRAZOLE
     Dosage: 15 MG, QD
     Route: 048
     Dates: start: 20240501, end: 20240507
  172. BLONANSERIN [Concomitant]
     Active Substance: BLONANSERIN
     Dosage: 20 MG
     Route: 062
     Dates: start: 20240303, end: 20240305
  173. ZINC OINTMENT [Concomitant]
     Dosage: UNK
     Route: 062
  174. ACETAMINOPHEN [Concomitant]
     Active Substance: ACETAMINOPHEN
     Dosage: 400 MG, PRN
     Route: 048
     Dates: start: 20240303, end: 20240303
  175. QUETIAPINE [Concomitant]
     Active Substance: QUETIAPINE
     Dosage: 25 MG, PRN
     Route: 048
     Dates: start: 20240229, end: 20240229
  176. EPINASTINE HYDROCHLORIDE [Concomitant]
     Active Substance: EPINASTINE HYDROCHLORIDE
     Dosage: UNK
     Route: 047
     Dates: start: 20240420
  177. NIFEDIPINE [Concomitant]
     Active Substance: NIFEDIPINE
     Dosage: 20 MG, QD
     Route: 048
     Dates: start: 20240425, end: 20240425
  178. NIFEDIPINE [Concomitant]
     Active Substance: NIFEDIPINE
     Dosage: 20 MG, 1 PER 12 HOUR
     Route: 048
     Dates: start: 20240426, end: 20240606
  179. DIPHENHYDRAMINE HYDROCHLORIDE [Concomitant]
     Active Substance: DIPHENHYDRAMINE HYDROCHLORIDE
     Dosage: UNK
     Route: 062
     Dates: start: 20240430
  180. PRIMPERAN [Concomitant]
     Active Substance: METOCLOPRAMIDE HYDROCHLORIDE
     Dosage: 5 MG, 1 PER 12 HOUR
     Route: 048
     Dates: start: 20240430, end: 20240430
  181. PRIMPERAN [Concomitant]
     Active Substance: METOCLOPRAMIDE HYDROCHLORIDE
     Dosage: 5 MG, PRN8
     Route: 048
     Dates: start: 20240501, end: 20240528
  182. PRIMPERAN [Concomitant]
     Active Substance: METOCLOPRAMIDE HYDROCHLORIDE
     Dosage: 5 MG, QD
     Route: 048
     Dates: start: 20240529, end: 20240529
  183. PRIMPERAN [Concomitant]
     Active Substance: METOCLOPRAMIDE HYDROCHLORIDE
     Dosage: 5 MG, PRN
     Route: 048
     Dates: start: 20240528

REACTIONS (6)
  - Hypokalaemia [Recovered/Resolved]
  - Blood sodium increased [Not Recovered/Not Resolved]
  - Cytopenia [Recovered/Resolved]
  - Hypophosphataemia [Recovered/Resolved]
  - Constipation [Unknown]
  - Nausea [Recovered/Resolved]

NARRATIVE: CASE EVENT DATE: 20240229
